FAERS Safety Report 8087174-9 (Version None)
Quarter: 2012Q1

REPORT INFORMATION
  Report Type: 
  Country: None (occurrence: None)
  Receive Date: 20120128
  Receipt Date: 20110413
  Transmission Date: 20120608
  Serious: No
  Sender: FDA-Public Use
  Company Number: US-ABBOTT-11P-163-0719427-00

PATIENT
  Sex: Male
  Weight: 95.34 kg

DRUGS (5)
  1. JOINT FORMULA [Concomitant]
     Indication: VITAMIN SUPPLEMENTATION
     Route: 048
  2. KRILL OIL [Concomitant]
     Indication: VITAMIN SUPPLEMENTATION
     Route: 048
  3. HUMIRA [Suspect]
     Indication: ANKYLOSING SPONDYLITIS
     Route: 058
     Dates: start: 20110314
  4. DICLOFENAC [Concomitant]
     Indication: ARTHRITIS
  5. DICLOFENAC [Concomitant]
     Indication: ANKYLOSING SPONDYLITIS

REACTIONS (1)
  - INJECTION SITE HAEMATOMA [None]
